FAERS Safety Report 25474965 (Version 1)
Quarter: 2025Q2

REPORT INFORMATION
  Report Type: Report from Study
  Country: US (occurrence: US)
  Receive Date: 20250624
  Receipt Date: 20250624
  Transmission Date: 20250717
  Serious: Yes (Other)
  Sender: ABBVIE
  Company Number: US-ABBVIE-6336274

PATIENT

DRUGS (1)
  1. HUMIRA [Suspect]
     Active Substance: ADALIMUMAB
     Indication: Rheumatoid arthritis
     Route: 058
     Dates: start: 20220720

REACTIONS (4)
  - Seizure [Recovered/Resolved]
  - Pharyngeal swelling [Recovered/Resolved]
  - Tremor [Unknown]
  - Drug hypersensitivity [Unknown]
